FAERS Safety Report 5484681-X (Version None)
Quarter: 2007Q4

REPORT INFORMATION
  Report Type: 
  Country: None (occurrence: None)
  Receive Date: 20071012
  Receipt Date: 20071001
  Transmission Date: 20080405
  Serious: Yes (Other)
  Sender: FDA-Public Use
  Company Number: US-PFIZER INC-2007083363

PATIENT
  Sex: Female
  Weight: 62.727 kg

DRUGS (1)
  1. CHANTIX [Suspect]
     Indication: EX-SMOKER
     Dosage: TEXT:1MG BID EVERY DAY TDD:2MG
     Dates: start: 20070801, end: 20070901

REACTIONS (2)
  - ANXIETY [None]
  - PANIC ATTACK [None]
